FAERS Safety Report 19652374 (Version 1)
Quarter: 2021Q3

REPORT INFORMATION
  Report Type: Spontaneous
  Country: IT (occurrence: IT)
  Receive Date: 20210803
  Receipt Date: 20210803
  Transmission Date: 20211014
  Serious: Yes (Hospitalization)
  Sender: FDA-Public Use
  Company Number: IT-DSJP-DSE-2021-123810

PATIENT
  Age: 79 Year
  Sex: Female
  Weight: 58 kg

DRUGS (3)
  1. LIXIANA [Suspect]
     Active Substance: EDOXABAN TOSYLATE
     Indication: ATRIAL FIBRILLATION
     Dosage: 30 MG, QD
     Route: 048
     Dates: start: 20200701, end: 20210515
  2. COMIRNATY [Suspect]
     Active Substance: TOZINAMERAN
     Indication: COVID-19 IMMUNISATION
     Dosage: 1 DF, TOTAL
     Route: 030
     Dates: start: 20210512, end: 20210512
  3. IDROSSICLOROCHINA DOC [Concomitant]
     Indication: PSORIATIC ARTHROPATHY
     Dosage: UNK

REACTIONS (4)
  - Acute myocardial infarction [Recovered/Resolved]
  - Pulmonary oedema [Recovered/Resolved]
  - Hypertensive crisis [Recovered/Resolved]
  - Pneumonia [Recovered/Resolved]

NARRATIVE: CASE EVENT DATE: 20210515
